FAERS Safety Report 7265900-6 (Version None)
Quarter: 2011Q1

REPORT INFORMATION
  Report Type: 
  Country: None (occurrence: None)
  Receive Date: 20110131
  Receipt Date: 20110121
  Transmission Date: 20110831
  Serious: Yes (Other)
  Sender: FDA-Public Use
  Company Number: B0695926A

PATIENT
  Sex: Female

DRUGS (4)
  1. MUCOSTA [Concomitant]
     Indication: INFLUENZA
     Dosage: 300MG PER DAY
     Route: 048
  2. ASVERIN [Concomitant]
     Indication: INFLUENZA
     Dosage: 60MG PER DAY
     Route: 048
  3. MUCODYNE [Concomitant]
     Indication: INFLUENZA
     Dosage: 1500MG PER DAY
     Route: 048
  4. RELENZA [Suspect]
     Indication: INFLUENZA
     Dosage: 20MG PER DAY
     Route: 055
     Dates: start: 20110114, end: 20110117

REACTIONS (2)
  - ERYTHEMA [None]
  - GENERALISED OEDEMA [None]
